FAERS Safety Report 20120194 (Version 1)
Quarter: 2021Q4

REPORT INFORMATION
  Report Type: Spontaneous
  Country: US (occurrence: None)
  Receive Date: 20211126
  Receipt Date: 20211126
  Transmission Date: 20220303
  Serious: Yes (Hospitalization)
  Sender: FDA-Public Use
  Company Number: None

PATIENT
  Age: 83 Year
  Sex: Male
  Weight: 88.1 kg

DRUGS (2)
  1. BAMLANIVIMAB [Suspect]
     Active Substance: BAMLANIVIMAB
     Indication: COVID-19
     Dosage: OTHER FREQUENCY : ONCE;?
     Route: 042
     Dates: start: 20211118, end: 20211118
  2. ETESEVIMAB [Suspect]
     Active Substance: ETESEVIMAB
     Indication: COVID-19
     Dosage: OTHER FREQUENCY : ONCE;?
     Route: 042

REACTIONS (8)
  - Asthenia [None]
  - Dysstasia [None]
  - Gait disturbance [None]
  - Urinary incontinence [None]
  - Cognitive disorder [None]
  - Hydrocephalus [None]
  - Hypertension [None]
  - Lung infiltration [None]

NARRATIVE: CASE EVENT DATE: 20211124
